FAERS Safety Report 9843471 (Version 1)
Quarter: 2013Q4

REPORT INFORMATION
  Report Type: Spontaneous
  Country: US (occurrence: None)
  Receive Date: 20131219
  Receipt Date: 20131219
  Transmission Date: 20140711
  Serious: Yes (Other)
  Sender: FDA-Public Use
  Company Number: 163-20785-13082188

PATIENT
  Age: 73 Year
  Sex: Male
  Weight: 64.41 kg

DRUGS (5)
  1. THALOMID [Suspect]
     Indication: MYELOFIBROSIS
     Route: 048
     Dates: start: 201307
  2. PREDNISONE(PREDNISONE) [Concomitant]
  3. LANTUS INSULIN (INSULIN GLARGINE) [Concomitant]
  4. ACYCLOVIR (ACICLOVIR) [Concomitant]
  5. STOMACH PILL(OTHER THERAPETUIC PRODUCTS [Concomitant]

REACTIONS (3)
  - Blood glucose increased [None]
  - Blindness [None]
  - Feeling jittery [None]
